FAERS Safety Report 5776313-8 (Version None)
Quarter: 2008Q2

REPORT INFORMATION
  Report Type: 
  Country: None (occurrence: None)
  Receive Date: 20080617
  Receipt Date: 20080617
  Transmission Date: 20081010
  Serious: Yes (Life-Threatening, Other)
  Sender: FDA-Public Use
  Company Number: None

PATIENT
  Sex: Female
  Weight: 68.4932 kg

DRUGS (1)
  1. DIGITEK BERTEK [Suspect]
     Indication: HEART RATE IRREGULAR
     Dosage: 1/DA
     Dates: start: 20080108

REACTIONS (5)
  - ASTHENIA [None]
  - DIZZINESS [None]
  - RENAL FAILURE [None]
  - VOMITING [None]
  - WEIGHT DECREASED [None]
